FAERS Safety Report 21631143 (Version 3)
Quarter: 2023Q1

REPORT INFORMATION
  Report Type: Report from Study
  Country: US (occurrence: US)
  Receive Date: 20221123
  Receipt Date: 20230116
  Transmission Date: 20230417
  Serious: Yes (Hospitalization, Other)
  Sender: FDA-Public Use
  Company Number: US-ABBVIE-4209673

PATIENT
  Sex: Female

DRUGS (1)
  1. HUMIRA [Suspect]
     Active Substance: ADALIMUMAB
     Indication: Psoriasis
     Dosage: FORM STRENGTH: 40 MILLIGRAM?CITRATE FREE
     Route: 058
     Dates: start: 20210202

REACTIONS (7)
  - Spinal fracture [Recovering/Resolving]
  - Hypersensitivity [Unknown]
  - Joint range of motion decreased [Unknown]
  - Concussion [Recovering/Resolving]
  - Balance disorder [Unknown]
  - Fall [Unknown]
  - Fall [Unknown]

NARRATIVE: CASE EVENT DATE: 20220101
